FAERS Safety Report 7416976-4 (Version None)
Quarter: 2011Q2

REPORT INFORMATION
  Report Type: 
  Country: None (occurrence: None)
  Receive Date: 20110407
  Receipt Date: 20110328
  Transmission Date: 20111010
  Serious: Yes (Other)
  Sender: FDA-Public Use
  Company Number: B0710705A

PATIENT
  Sex: Female

DRUGS (3)
  1. ROSIGLITAZONE MALEATE [Suspect]
     Indication: POLYCYSTIC OVARIES
     Dosage: 4 MG / PER DAY
  2. CLOMIPHENE CITRATE (FORMULATION UNKNOWN) (CLOMIPHENE CITRATE) [Suspect]
     Dosage: 50 MG / CYCLIC
  3. METFORMIN HCL [Suspect]
     Indication: POLYCYSTIC OVARIES
     Dosage: 500 MG / THREE TIMES PER DAY

REACTIONS (3)
  - DRUG EXPOSURE DURING PREGNANCY [None]
  - PREGNANCY [None]
  - ABORTION [None]
